FAERS Safety Report 8501841 (Version 8)
Quarter: 2013Q3

REPORT INFORMATION
  Report Type: Spontaneous
  Country: US (occurrence: US)
  Receive Date: 20120410
  Receipt Date: 20130809
  Transmission Date: 20140515
  Serious: Yes (Other)
  Sender: FDA-Public Use
  Company Number: US-ROCHE-781902

PATIENT
  Age: 30 Year
  Sex: Female
  Weight: 59.02 kg

DRUGS (4)
  1. ACCUTANE [Suspect]
     Indication: ACNE
     Route: 065
     Dates: start: 20010508, end: 20010918
  2. ACCUTANE [Suspect]
     Route: 065
  3. PROPRANOLOL [Concomitant]
     Indication: SINUS TACHYCARDIA
  4. PROZAC [Concomitant]
     Indication: DEPRESSION

REACTIONS (17)
  - Crohn^s disease [Unknown]
  - Proctitis [Unknown]
  - Inflammatory bowel disease [Unknown]
  - Stress [Unknown]
  - Depression [Unknown]
  - Large intestine polyp [Unknown]
  - Irritable bowel syndrome [Unknown]
  - Arthritis [Unknown]
  - Blood cholesterol increased [Recovered/Resolved]
  - Blood triglycerides increased [Recovered/Resolved]
  - Hyperhidrosis [Unknown]
  - Cheilitis [Unknown]
  - Blood triglycerides increased [Unknown]
  - Blood cholesterol increased [Recovered/Resolved]
  - Lip dry [Unknown]
  - Dermatitis [Unknown]
  - Alopecia [Unknown]
